FAERS Safety Report 4271281-2 (Version None)
Quarter: 2004Q1

REPORT INFORMATION
  Report Type: 
  Country: None (occurrence: None)
  Receive Date: 20040113
  Receipt Date: 20040107
  Transmission Date: 20041129
  Serious: Yes (Death, Other)
  Sender: FDA-Public Use
  Company Number: 2004193124US

PATIENT
  Sex: Female

DRUGS (3)
  1. CELEBREX [Suspect]
     Dosage: ORAL
     Route: 048
  2. VICODIN [Suspect]
  3. MORPHINE [Suspect]

REACTIONS (6)
  - DEMENTIA [None]
  - DRUG INTERACTION [None]
  - INTESTINAL PERFORATION [None]
  - PAIN [None]
  - POST PROCEDURAL COMPLICATION [None]
  - SCREAMING [None]
